FAERS Safety Report 18082326 (Version 1)
Quarter: 2020Q3

REPORT INFORMATION
  Report Type: Spontaneous
  Country: GB (occurrence: GB)
  Receive Date: 20200729
  Receipt Date: 20200729
  Transmission Date: 20201103
  Serious: Yes (Hospitalization, Other)
  Sender: FDA-Public Use
  Company Number: GB-TEVA-2020-GB-1805844

PATIENT
  Age: 66 Year
  Sex: Male

DRUGS (6)
  1. PREDNISOLONE. [Suspect]
     Active Substance: PREDNISOLONE
     Indication: IMMUNE-MEDIATED ENTEROCOLITIS
     Dosage: 60 MILLIGRAM DAILY; AT THE TIME OF EPISODE 1
     Route: 048
  2. NIVOLUMAB [Suspect]
     Active Substance: NIVOLUMAB
     Indication: MALIGNANT MELANOMA
     Route: 065
  3. PREDNISOLONE. [Suspect]
     Active Substance: PREDNISOLONE
     Dosage: 40 MILLIGRAM DAILY; AT THE TIME OF EPISODE 2
     Route: 048
  4. METHYLPREDNISOLONE. [Suspect]
     Active Substance: METHYLPREDNISOLONE
     Indication: IMMUNE-MEDIATED ENTEROCOLITIS
     Dosage: 150 MILLIGRAM DAILY; AT BOTH EPISODE 1 AND EPISODE 2
     Route: 042
  5. IPILIMUMAB [Suspect]
     Active Substance: IPILIMUMAB
     Indication: MALIGNANT MELANOMA
     Dosage: RECEIVED TWO CYCLES OF 3 MG/KG/3 WEEKS
     Route: 065
  6. NIVOLUMAB [Suspect]
     Active Substance: NIVOLUMAB
     Route: 065

REACTIONS (4)
  - Immune-mediated enterocolitis [Unknown]
  - Large intestine perforation [Unknown]
  - Drug ineffective [Unknown]
  - Epstein Barr virus positive mucocutaneous ulcer [Unknown]
